FAERS Safety Report 5900784-7 (Version None)
Quarter: 2008Q3

REPORT INFORMATION
  Report Type: 
  Country: None (occurrence: None)
  Receive Date: 20080925
  Receipt Date: 20080912
  Transmission Date: 20090109
  Serious: Yes (Death, Other)
  Sender: FDA-Public Use
  Company Number: 2008002046

PATIENT
  Age: 76 Year
  Sex: Male

DRUGS (3)
  1. TARCEVA [Suspect]
     Indication: LUNG NEOPLASM MALIGNANT
     Dosage: ORAL
     Route: 048
  2. NAVELBINE [Suspect]
     Dosage: (60 MG)
     Dates: start: 20080507, end: 20080529
  3. CISPLATIN [Concomitant]

REACTIONS (18)
  - ASPARTATE AMINOTRANSFERASE INCREASED [None]
  - BLOOD GLUCOSE INCREASED [None]
  - BLOOD LACTATE DEHYDROGENASE INCREASED [None]
  - BLOOD PRESSURE DECREASED [None]
  - CACHEXIA [None]
  - DISEASE PROGRESSION [None]
  - DRY SKIN [None]
  - GAMMA-GLUTAMYLTRANSFERASE INCREASED [None]
  - GASTROINTESTINAL SOUNDS ABNORMAL [None]
  - GENERAL PHYSICAL HEALTH DETERIORATION [None]
  - HEART SOUNDS ABNORMAL [None]
  - MALIGNANT NEOPLASM PROGRESSION [None]
  - MUCOUS MEMBRANE DISORDER [None]
  - PANCYTOPENIA [None]
  - PNEUMONIA [None]
  - PSYCHOMOTOR RETARDATION [None]
  - QRS AXIS ABNORMAL [None]
  - RENAL FAILURE CHRONIC [None]
